FAERS Safety Report 17111590 (Version 2)
Quarter: 2019Q4

REPORT INFORMATION
  Report Type: Spontaneous
  Country: FR (occurrence: FR)
  Receive Date: 20191204
  Receipt Date: 20191209
  Transmission Date: 20200122
  Serious: Yes (Hospitalization, Other)
  Sender: FDA-Public Use
  Company Number: FR-MYLANLABS-2019M1117358

PATIENT
  Age: 54 Year
  Sex: Male
  Weight: 59 kg

DRUGS (6)
  1. VANCOMYCIN [Suspect]
     Active Substance: VANCOMYCIN
     Indication: DIVERTICULITIS
     Dosage: 2 GRAM, QD
     Route: 042
     Dates: start: 20150912, end: 20150930
  2. BACTRIM [Suspect]
     Active Substance: SULFAMETHOXAZOLE\TRIMETHOPRIM
     Indication: DEVICE RELATED INFECTION
     Dosage: 2 DOSAGE FORM, QD
     Route: 048
     Dates: start: 20151001, end: 20151008
  3. IMIPENEM MONOHYDRATE [Suspect]
     Active Substance: IMIPENEM
     Indication: DEVICE RELATED INFECTION
     Dosage: 2000 MILLIGRAM, QD (500 MG, QID)
     Route: 042
     Dates: start: 20150923, end: 20151001
  4. CLAMOXYL                           /00249601/ [Suspect]
     Active Substance: AMOXICILLIN
     Indication: DEVICE RELATED INFECTION
     Dosage: 3 DOSAGE FORM, QD
     Route: 048
     Dates: start: 20151001, end: 20151008
  5. CILASTATINE [Suspect]
     Active Substance: CILASTATIN
     Indication: DEVICE RELATED INFECTION
     Dosage: 2000 MILLIGRAM, QD
     Route: 042
     Dates: start: 20150923, end: 20151001
  6. PIPERACILLIN AND TAZOBACTAM [Concomitant]
     Active Substance: PIPERACILLIN SODIUM\TAZOBACTAM SODIUM
     Indication: DIVERTICULITIS
     Dosage: UNK
     Dates: start: 20150912, end: 20150923

REACTIONS (3)
  - Eosinophilia [Recovered/Resolved]
  - Rash [Recovered/Resolved]
  - Nephritis [Recovered/Resolved]

NARRATIVE: CASE EVENT DATE: 20151005
